FAERS Safety Report 17056219 (Version 2)
Quarter: 2019Q4

REPORT INFORMATION
  Report Type: Spontaneous
  Country: SI (occurrence: SI)
  Receive Date: 20191121
  Receipt Date: 20191205
  Transmission Date: 20200122
  Serious: Yes (Hospitalization)
  Sender: FDA-Public Use
  Company Number: SI-AMGEN-SVNSP2019189282

PATIENT
  Age: 20 Year
  Sex: Male

DRUGS (4)
  1. TRANEXAMIC ACID. [Concomitant]
     Active Substance: TRANEXAMIC ACID
     Dosage: 500 MILLIGRAM, Q6H
  2. IMMUNOGLOBULIN I.V [Concomitant]
     Active Substance: HUMAN IMMUNOGLOBULIN G
     Dosage: UNK
     Route: 042
  3. NPLATE [Suspect]
     Active Substance: ROMIPLOSTIM
     Indication: IMMUNE THROMBOCYTOPENIC PURPURA
     Dosage: 3 MILLIGRAM/KILOGRAM, QWK
     Route: 065
  4. NPLATE [Suspect]
     Active Substance: ROMIPLOSTIM
     Dosage: 10 MILLIGRAM/KILOGRAM
     Route: 065

REACTIONS (6)
  - Haematoma [Unknown]
  - Purpura [Unknown]
  - Anxiety [Unknown]
  - Petechiae [Unknown]
  - Platelet count abnormal [Unknown]
  - Abdominal pain upper [Unknown]
